FAERS Safety Report 9746792 (Version 1)
Quarter: 2013Q4

REPORT INFORMATION
  Report Type: Spontaneous
  Country: MA (occurrence: MA)
  Receive Date: 20131211
  Receipt Date: 20131211
  Transmission Date: 20140711
  Serious: Yes (Hospitalization)
  Sender: FDA-Public Use
  Company Number: PHHY2013MA141685

PATIENT
  Age: 27 Year
  Sex: Female

DRUGS (1)
  1. AMLODIPINE [Suspect]
     Indication: SUICIDE ATTEMPT
     Dosage: 150 MG, UNK

REACTIONS (10)
  - Toxicity to various agents [Unknown]
  - Suicide attempt [Unknown]
  - Lethargy [Unknown]
  - Electrocardiogram T wave abnormal [Unknown]
  - Electrocardiogram ST segment abnormal [Unknown]
  - Sinus tachycardia [Unknown]
  - Peripheral coldness [Unknown]
  - Nausea [Unknown]
  - Hypotension [Recovered/Resolved]
  - Intentional overdose [Recovered/Resolved]
